FAERS Safety Report 5771643-8 (Version None)
Quarter: 2008Q2

REPORT INFORMATION
  Report Type: 
  Country: None (occurrence: None)
  Receive Date: 20080612
  Receipt Date: 20080612
  Transmission Date: 20081010
  Serious: No
  Sender: FDA-Public Use
  Company Number: None

PATIENT
  Sex: Female
  Weight: 92.5338 kg

DRUGS (11)
  1. CYMBALTA [Suspect]
     Indication: FIBROMYALGIA
     Dosage: ORAL 60MG TWICE A DAY
     Route: 048
     Dates: start: 20080205, end: 20080405
  2. TOPROL-XL [Concomitant]
  3. NEXIUM [Concomitant]
  4. ADVAIR DISKUS 100/50 [Concomitant]
  5. IPRATROPIUM BROMIDE [Concomitant]
  6. SINGULAIR [Concomitant]
  7. LEVAQUIN [Concomitant]
  8. PROVIGIL [Concomitant]
  9. TOPAMAX [Concomitant]
  10. SYNTHROID [Concomitant]
  11. ALLEGRA D [Concomitant]

REACTIONS (5)
  - FATIGUE [None]
  - FIBROMYALGIA [None]
  - INSOMNIA [None]
  - MYALGIA [None]
  - PHARMACEUTICAL PRODUCT COMPLAINT [None]
